FAERS Safety Report 13744315 (Version 1)
Quarter: 2017Q3

REPORT INFORMATION
  Report Type: Report from Study
  Country: US (occurrence: US)
  Receive Date: 20170712
  Receipt Date: 20170712
  Transmission Date: 20171127
  Serious: Yes (Other)
  Sender: FDA-Public Use
  Company Number: US-ROCHE-1552666

PATIENT
  Age: 84 Year
  Sex: Female

DRUGS (21)
  1. AMBIEN [Concomitant]
     Active Substance: ZOLPIDEM TARTRATE
     Indication: HYPERTENSION
     Route: 065
     Dates: start: 20130922
  2. FLUTICASONE. [Concomitant]
     Active Substance: FLUTICASONE
     Indication: BREAST CANCER
  3. METOPROLOL SUCCINATE. [Concomitant]
     Active Substance: METOPROLOL SUCCINATE
     Indication: CHOLECYSTECTOMY
  4. XANAX [Concomitant]
     Active Substance: ALPRAZOLAM
     Indication: OSTEOPOROSIS
  5. SIMVASTATIN. [Concomitant]
     Active Substance: SIMVASTATIN
     Indication: OSTEOPOROSIS
  6. HEPARIN [Concomitant]
     Active Substance: HEPARIN SODIUM
     Indication: PRODUCT USED FOR UNKNOWN INDICATION
     Route: 065
     Dates: start: 20130924, end: 20130927
  7. POTASSIUM CHLORIDE. [Concomitant]
     Active Substance: POTASSIUM CHLORIDE
     Indication: PRODUCT USED FOR UNKNOWN INDICATION
     Route: 065
     Dates: start: 20130924, end: 20130924
  8. CIPROFLOXACIN. [Concomitant]
     Active Substance: CIPROFLOXACIN
     Indication: PRODUCT USED FOR UNKNOWN INDICATION
     Route: 065
     Dates: start: 20130926, end: 20130930
  9. LABETALOL [Concomitant]
     Active Substance: LABETALOL\LABETALOL HYDROCHLORIDE
     Indication: GLAUCOMA
     Route: 065
     Dates: start: 20130923, end: 20130923
  10. ASPIRIN. [Concomitant]
     Active Substance: ASPIRIN
     Indication: HYPERLIPIDAEMIA
  11. ATENOLOL. [Concomitant]
     Active Substance: ATENOLOL
     Indication: ANXIETY
     Route: 065
     Dates: end: 20130922
  12. ESTRACE [Concomitant]
     Active Substance: ESTRADIOL
     Indication: BACK PAIN
  13. HYDROCHLOROTHIAZIDE. [Concomitant]
     Active Substance: HYDROCHLOROTHIAZIDE
     Indication: HEART RATE IRREGULAR
     Route: 065
     Dates: end: 20130922
  14. TYLENOL [Concomitant]
     Active Substance: ACETAMINOPHEN
     Indication: PRODUCT USED FOR UNKNOWN INDICATION
     Route: 065
     Dates: start: 20130923, end: 20130923
  15. FUROSEMIDE. [Concomitant]
     Active Substance: FUROSEMIDE
     Indication: CATARACT
     Route: 065
     Dates: start: 20130923, end: 20130924
  16. ALTEPLASE. [Suspect]
     Active Substance: ALTEPLASE
     Indication: ISCHAEMIC STROKE
     Route: 042
  17. LOSARTAN. [Concomitant]
     Active Substance: LOSARTAN
     Indication: MASTECTOMY
  18. MIRTAZAPINE. [Concomitant]
     Active Substance: MIRTAZAPINE
     Indication: IRRITABLE BOWEL SYNDROME
  19. PNEUMOVAX 23 [Concomitant]
     Active Substance: PNEUMOCOCCAL VACCINE, POLYVALENT 23
     Indication: PRODUCT USED FOR UNKNOWN INDICATION
     Route: 065
     Dates: start: 20130923, end: 20130923
  20. ALUMINIUM HYDROXIDE-MAGNESIUM CARB. GEL [Concomitant]
     Indication: RESPIRATORY DISTRESS
     Dosage: DRIED
     Route: 065
     Dates: start: 20130923, end: 20130924
  21. CALTRATE WITH VITAMIN D [Concomitant]
     Active Substance: CALCIUM CARBONATE\CHOLECALCIFEROL
     Indication: INSOMNIA

REACTIONS (2)
  - Haemorrhagic cerebral infarction [Recovered/Resolved]
  - Haemorrhagic transformation stroke [Recovered/Resolved]

NARRATIVE: CASE EVENT DATE: 20130924
